FAERS Safety Report 5663805-5 (Version None)
Quarter: 2008Q1

REPORT INFORMATION
  Report Type: 
  Country: None (occurrence: None)
  Receive Date: 20080310
  Receipt Date: 20080226
  Transmission Date: 20080703
  Serious: Yes (Hospitalization, Other)
  Sender: FDA-Public Use
  Company Number: 2008005064

PATIENT
  Age: 39 Year
  Sex: Male

DRUGS (1)
  1. ZINC OXIDE (ZINC OXIDE) [Suspect]
     Dosage: 150 G, ORAL
     Route: 048

REACTIONS (5)
  - ABDOMINAL PAIN [None]
  - ABDOMINAL TENDERNESS [None]
  - CAUSTIC INJURY [None]
  - NAUSEA [None]
  - VOMITING [None]
